FAERS Safety Report 6251613-6 (Version None)
Quarter: 2009Q2

REPORT INFORMATION
  Report Type: 
  Country: None (occurrence: None)
  Receive Date: 20090626
  Receipt Date: 20090626
  Transmission Date: 20091009
  Serious: No
  Sender: FDA-Public Use
  Company Number: None

PATIENT
  Age: 61 Year
  Sex: Female
  Weight: 74.8435 kg

DRUGS (1)
  1. ZICAM, COLD REMEDY SWAP  ZINCOM GLUCOMIUM MATRIXX INITIATIVES [Suspect]
     Indication: NASOPHARYNGITIS
     Dosage: INSTRUCTIONS ON BOX NASAL ; A FEW DAYS
     Route: 045
     Dates: start: 20080712, end: 20080715

REACTIONS (3)
  - ANOSMIA [None]
  - DYSGEUSIA [None]
  - PAROSMIA [None]
